FAERS Safety Report 6574938-3 (Version None)
Quarter: 2010Q1

REPORT INFORMATION
  Report Type: 
  Country: None (occurrence: None)
  Receive Date: 20100209
  Receipt Date: 20100129
  Transmission Date: 20100710
  Serious: Yes (Other)
  Sender: FDA-Public Use
  Company Number: PHMT2005CA00759

PATIENT
  Sex: Female

DRUGS (5)
  1. CLOZARIL [Suspect]
     Indication: SCHIZOPHRENIA
     Dosage: 250 MG, QHS
     Route: 048
     Dates: start: 20040924, end: 20051122
  2. BUPROPION [Concomitant]
     Dosage: 150 MG PER DAY
     Route: 048
  3. CITALOPRAM HYDROBROMIDE [Concomitant]
     Dosage: UNK, QD
  4. CLONAZEPAM [Concomitant]
     Dosage: 0.5 MG, QHS
  5. LITHIUM CARBONATE [Concomitant]
     Dosage: 900 MG, UNK

REACTIONS (8)
  - CELLULITIS [None]
  - EOSINOPHIL COUNT DECREASED [None]
  - INFLUENZA LIKE ILLNESS [None]
  - LYMPHOCYTE COUNT DECREASED [None]
  - MEAN PLATELET VOLUME DECREASED [None]
  - NASOPHARYNGITIS [None]
  - NEUTROPENIA [None]
  - PAROTITIS [None]
